FAERS Safety Report 17061479 (Version 1)
Quarter: 2019Q4

REPORT INFORMATION
  Report Type: Spontaneous
  Country: US (occurrence: US)
  Receive Date: 20191121
  Receipt Date: 20191121
  Transmission Date: 20200122
  Serious: No
  Sender: FDA-Public Use
  Company Number: US-BAUSCH-BL-2019-024722

PATIENT
  Sex: Female
  Weight: 59.02 kg

DRUGS (7)
  1. APRISO [Suspect]
     Active Substance: MESALAMINE
     Indication: COLITIS MICROSCOPIC
     Route: 048
     Dates: start: 201807, end: 2019
  2. CLONAZEPAM. [Concomitant]
     Active Substance: CLONAZEPAM
     Indication: PRODUCT USED FOR UNKNOWN INDICATION
     Dosage: AS NEEDED
  3. APRISO [Suspect]
     Active Substance: MESALAMINE
     Indication: PRODUCT USE IN UNAPPROVED INDICATION
     Dosage: IN THE LAST TWO MONTHS,THREE CAPSULES ONCE DAILY INSTEAD OF FOUR CAPSULES ONCE DAILY, 2 OCCASIONS.
     Route: 048
     Dates: start: 2019, end: 2019
  4. ATENOLOL. [Concomitant]
     Active Substance: ATENOLOL
     Indication: PRODUCT USED FOR UNKNOWN INDICATION
  5. ONDANSETRON [Concomitant]
     Active Substance: ONDANSETRON
     Indication: PRODUCT USED FOR UNKNOWN INDICATION
  6. APRISO [Suspect]
     Active Substance: MESALAMINE
     Dosage: HAD TO INCREASE BACK TO FOUR CAPSULES ONCE DAILY
     Route: 048
     Dates: start: 2019
  7. PERCOCET [Concomitant]
     Active Substance: ACETAMINOPHEN\OXYCODONE HYDROCHLORIDE
     Indication: PRODUCT USED FOR UNKNOWN INDICATION
     Dosage: AS NEEDED

REACTIONS (11)
  - Intentional product use issue [Unknown]
  - Sinusitis [Unknown]
  - Product use in unapproved indication [Unknown]
  - Scab [Unknown]
  - Skin laceration [Unknown]
  - Impaired healing [Unknown]
  - Abdominal distension [Unknown]
  - Feeling abnormal [Unknown]
  - Body temperature increased [Recovered/Resolved]
  - Diarrhoea [Unknown]
  - Malaise [Unknown]

NARRATIVE: CASE EVENT DATE: 2018
